FAERS Safety Report 21584435 (Version 1)
Quarter: 2022Q4

REPORT INFORMATION
  Report Type: Spontaneous
  Country: US (occurrence: US)
  Receive Date: 20221111
  Receipt Date: 20221111
  Transmission Date: 20230112
  Serious: No
  Sender: FDA-Public Use
  Company Number: US-SA-SAC20221109000785

PATIENT
  Age: 51 Year
  Sex: Male
  Weight: 71.655 kg

DRUGS (15)
  1. FABRAZYME [Suspect]
     Active Substance: AGALSIDASE BETA
     Indication: Fabry^s disease
     Dosage: 70 MG, QOW
     Route: 042
     Dates: start: 20181121
  2. METOPROLOL SUCCINATE [Concomitant]
     Active Substance: METOPROLOL SUCCINATE
  3. MYFORTIC [Concomitant]
     Active Substance: MYCOPHENOLATE SODIUM
  4. MAGNESIUM OXIDE [Concomitant]
     Active Substance: MAGNESIUM OXIDE
  5. ATORVASTATIN CALCIUM [Concomitant]
     Active Substance: ATORVASTATIN CALCIUM
  6. EPINEPHRINE [Concomitant]
     Active Substance: EPINEPHRINE
  7. .ALPHA.-TOCOPHEROL [Concomitant]
     Active Substance: .ALPHA.-TOCOPHEROL
  8. PREDNISONE [Concomitant]
     Active Substance: PREDNISONE
  9. STERILE WATER [Concomitant]
     Active Substance: WATER
  10. ZINC [Concomitant]
     Active Substance: ZINC
  11. FAMOTIDINE [Concomitant]
     Active Substance: FAMOTIDINE
  12. SODIUM CHLORIDE [Concomitant]
     Active Substance: SODIUM CHLORIDE
  13. TACROLIMUS [Concomitant]
     Active Substance: TACROLIMUS
  14. TAMSULOSIN [Concomitant]
     Active Substance: TAMSULOSIN
  15. VITAMINS [Concomitant]
     Active Substance: VITAMINS

REACTIONS (3)
  - Urinary tract infection [Unknown]
  - Feeling hot [Unknown]
  - Pyrexia [Unknown]

NARRATIVE: CASE EVENT DATE: 20220101
